FAERS Safety Report 8047046-2 (Version None)
Quarter: 2012Q1

REPORT INFORMATION
  Report Type: 
  Country: None (occurrence: None)
  Receive Date: 20120116
  Receipt Date: 20120106
  Transmission Date: 20120608
  Serious: Yes (Other)
  Sender: FDA-Public Use
  Company Number: CA-JNJFOC-20111112307

PATIENT
  Sex: Female

DRUGS (2)
  1. KETOCONAZOLE [Suspect]
     Route: 061
  2. KETOCONAZOLE [Suspect]
     Indication: TINEA INFECTION
     Route: 061

REACTIONS (14)
  - ERYTHEMA [None]
  - HYPERSENSITIVITY [None]
  - ALOPECIA [None]
  - MELANOCYTIC NAEVUS [None]
  - RASH [None]
  - SKIN BURNING SENSATION [None]
  - OFF LABEL USE [None]
  - INAPPROPRIATE SCHEDULE OF DRUG ADMINISTRATION [None]
  - DRY SKIN [None]
  - SUICIDAL IDEATION [None]
  - SKIN EXFOLIATION [None]
  - PRURITUS [None]
  - DERMATITIS [None]
  - SENSORY LOSS [None]
